FAERS Safety Report 14284300 (Version 1)
Quarter: 2017Q4

REPORT INFORMATION
  Report Type: Spontaneous
  Country: US (occurrence: US)
  Receive Date: 20171214
  Receipt Date: 20171214
  Transmission Date: 20180321
  Serious: No
  Sender: FDA-Public Use
  Company Number: US-BIOGEN-2017BI00487057

PATIENT

DRUGS (1)
  1. TECFIDERA [Suspect]
     Active Substance: DIMETHYL FUMARATE
     Indication: PRODUCT USED FOR UNKNOWN INDICATION
     Route: 065

REACTIONS (13)
  - Swelling face [Unknown]
  - Urticaria [Unknown]
  - Swollen tongue [Unknown]
  - Eye swelling [Unknown]
  - Anxiety [Unknown]
  - Hypersensitivity [Unknown]
  - Pruritus [Unknown]
  - Dyspnoea [Unknown]
  - Lip swelling [Unknown]
  - Rash vesicular [Unknown]
  - Stomatitis [Unknown]
  - Pharyngeal oedema [Unknown]
  - Dizziness [Unknown]
